FAERS Safety Report 17051532 (Version 1)
Quarter: 2019Q4

REPORT INFORMATION
  Report Type: Spontaneous
  Country: FR (occurrence: FR)
  Receive Date: 20191120
  Receipt Date: 20191120
  Transmission Date: 20200122
  Serious: Yes (Hospitalization, Other)
  Sender: FDA-Public Use
  Company Number: FR-SUN PHARMACEUTICAL INDUSTRIES LTD-2019RR-228133

PATIENT
  Age: 50 Year
  Sex: Male

DRUGS (3)
  1. LENVIMA 10 MG, GELULE [Concomitant]
     Indication: THYROID CANCER
     Dosage: 20 MILLIGRAM, DAILY
     Route: 048
     Dates: start: 20190628, end: 20191019
  2. LEVOTHYROX 150 MICROGRAMMES, COMPRIME SECABLE [Concomitant]
     Active Substance: LEVOTHYROXINE SODIUM
     Indication: THYROID CANCER
     Dosage: 150 MICROGRAM, DAILY
     Route: 048
  3. PARACETAMOL [Suspect]
     Active Substance: ACETAMINOPHEN
     Indication: TOOTHACHE
     Dosage: 4 GRAM, DAILY
     Route: 048
     Dates: start: 20191016, end: 20191019

REACTIONS (4)
  - Hepatic failure [Recovering/Resolving]
  - Duplicate therapy error [Recovered/Resolved]
  - Thrombocytopenia [Recovering/Resolving]
  - Overdose [Recovered/Resolved]

NARRATIVE: CASE EVENT DATE: 20191016
